FAERS Safety Report 18069685 (Version 2)
Quarter: 2020Q3

REPORT INFORMATION
  Report Type: Spontaneous
  Country: JP (occurrence: JP)
  Receive Date: 20200726
  Receipt Date: 20200803
  Transmission Date: 20201103
  Serious: Yes (Other)
  Sender: FDA-Public Use
  Company Number: JP-BEH-2020120169

PATIENT
  Age: 1 Year
  Sex: Male
  Weight: 4.9 kg

DRUGS (2)
  1. ALBUMIN HUMAN (NC) [Suspect]
     Active Substance: ALBUMIN HUMAN
     Indication: HYPOPROTEINAEMIA
     Route: 065
  2. ALBUMIN HUMAN (NC) [Suspect]
     Active Substance: ALBUMIN HUMAN
     Indication: HYPOALBUMINAEMIA

REACTIONS (1)
  - Hypochromic anaemia [Recovered/Resolved]
